FAERS Safety Report 11806225 (Version 2)
Quarter: 2016Q1

REPORT INFORMATION
  Report Type: Spontaneous
  Country: US (occurrence: US)
  Receive Date: 20151207
  Receipt Date: 20160104
  Transmission Date: 20160525
  Serious: Yes (Death, Other)
  Sender: FDA-Public Use
  Company Number: US-009507513-1512USA001576

PATIENT
  Sex: Male

DRUGS (2)
  1. EMEND [Suspect]
     Active Substance: APREPITANT
     Indication: PROPHYLAXIS OF NAUSEA AND VOMITING
     Dosage: 125 MG, DAY 1
     Route: 048
     Dates: start: 2015, end: 2015
  2. EMEND [Suspect]
     Active Substance: APREPITANT
     Dosage: 80 MG, DAY 2 AND 3
     Route: 048
     Dates: start: 2015, end: 201507

REACTIONS (1)
  - Neoplasm recurrence [Fatal]

NARRATIVE: CASE EVENT DATE: 2015
